FAERS Safety Report 8311992-2 (Version None)
Quarter: 2012Q1

REPORT INFORMATION
  Report Type: 
  Country: None (occurrence: None)
  Receive Date: 20120315
  Receipt Date: 20110316
  Transmission Date: 20120608
  Serious: Yes (Other)
  Sender: FDA-Public Use
  Company Number: PHHY2011US20206

PATIENT
  Age: 42 Year
  Sex: Male

DRUGS (4)
  1. SOLU-MEDROL [Concomitant]
  2. AMITRIPTYLINE HCL [Concomitant]
  3. GILENYA [Suspect]
     Indication: RELAPSING-REMITTING MULTIPLE SCLEROSIS
     Dosage: 0.5 MG, QD, ORAL
     Route: 048
     Dates: start: 20110217, end: 20110309
  4. PREDNISONE TAB [Concomitant]

REACTIONS (1)
  - DYSPNOEA [None]
